FAERS Safety Report 13836293 (Version 1)
Quarter: 2017Q3

REPORT INFORMATION
  Report Type: Report from Study
  Country: US (occurrence: US)
  Receive Date: 20170804
  Receipt Date: 20170804
  Transmission Date: 20171127
  Serious: Yes (Other)
  Sender: FDA-Public Use
  Company Number: PHEH2017US024011

PATIENT
  Sex: Female

DRUGS (1)
  1. COSENTYX [Suspect]
     Active Substance: SECUKINUMAB
     Indication: PRODUCT USED FOR UNKNOWN INDICATION
     Route: 065

REACTIONS (6)
  - Autoimmune disorder [Unknown]
  - Influenza [Unknown]
  - Autoimmune hepatitis [Not Recovered/Not Resolved]
  - Alopecia [Unknown]
  - Hypoacusis [Unknown]
  - Condition aggravated [Unknown]
